FAERS Safety Report 4329662-4 (Version None)
Quarter: 2004Q2

REPORT INFORMATION
  Report Type: 
  Country: None (occurrence: None)
  Receive Date: 20040401
  Receipt Date: 20040109
  Transmission Date: 20050107
  Serious: Yes (Other)
  Sender: FDA-Public Use
  Company Number: PHFR2004GB00556

PATIENT
  Age: 73 Year
  Sex: Female

DRUGS (6)
  1. CLOZARIL [Suspect]
     Indication: SCHIZOPHRENIA
     Route: 048
     Dates: start: 20031217
  2. CLOZARIL [Suspect]
     Dosage: 25MG MANE + 50MG NOCTE
     Route: 048
     Dates: end: 20040109
  3. GLICLAZIDE [Concomitant]
     Indication: DIABETES MELLITUS NON-INSULIN-DEPENDENT
     Dosage: 80 MG, BID
     Route: 048
     Dates: start: 20031107
  4. ACARBOSE [Concomitant]
     Indication: DIABETES MELLITUS NON-INSULIN-DEPENDENT
     Dosage: 50 MG, TID
     Route: 048
     Dates: start: 20031212
  5. QUETIAPINE [Concomitant]
     Dosage: 25MG/DAY
     Route: 048
  6. CO-BENELDOPA [Concomitant]
     Indication: PARKINSON'S DISEASE
     Route: 048
     Dates: start: 20031107

REACTIONS (2)
  - AGRANULOCYTOSIS [None]
  - OPEN WOUND [None]
